FAERS Safety Report 7111717-2 (Version None)
Quarter: 2010Q4

REPORT INFORMATION
  Report Type: 
  Country: None (occurrence: None)
  Receive Date: 20101118
  Receipt Date: 20101108
  Transmission Date: 20110411
  Serious: Yes (Other)
  Sender: FDA-Public Use
  Company Number: JP-MERCK-1011USA01629

PATIENT
  Age: 88 Year
  Sex: Female

DRUGS (3)
  1. COSOPT [Suspect]
     Indication: NORMAL TENSION GLAUCOMA
     Route: 047
     Dates: start: 20100929, end: 20100929
  2. COSOPT [Suspect]
     Route: 047
     Dates: start: 20101002, end: 20101002
  3. TRAVATAN Z [Concomitant]
     Indication: NORMAL TENSION GLAUCOMA
     Route: 047
     Dates: start: 20090509

REACTIONS (3)
  - ECZEMA [None]
  - PRURITUS GENERALISED [None]
  - SWELLING FACE [None]
